FAERS Safety Report 6429330-9 (Version None)
Quarter: 2009Q4

REPORT INFORMATION
  Report Type: 
  Country: None (occurrence: None)
  Receive Date: 20091105
  Receipt Date: 20091027
  Transmission Date: 20100525
  Serious: Yes (Hospitalization)
  Sender: FDA-Public Use
  Company Number: US-B.I. PHARMACEUTICALS,INC./RIDGEFIELD-2009-BP-10426BP

PATIENT
  Sex: Female

DRUGS (9)
  1. ZANTAC 150 [Suspect]
     Indication: DYSPEPSIA
     Route: 048
     Dates: start: 20090701
  2. ZANTAC 150 [Suspect]
     Dosage: 300 MG
     Route: 048
     Dates: start: 20090806, end: 20090829
  3. INDERAL [Concomitant]
     Indication: MITRAL VALVE PROLAPSE
     Dosage: 20 MG
  4. INDERAL [Concomitant]
     Indication: TACHYCARDIA
  5. PLAVIX [Concomitant]
     Indication: TRANSIENT ISCHAEMIC ATTACK
     Dosage: 75 MG
     Dates: start: 20010101
  6. PLAVIX [Concomitant]
     Indication: CEREBROVASCULAR ACCIDENT PROPHYLAXIS
  7. GENERIC OTC CLARITIN [Concomitant]
  8. CENTRUM [Concomitant]
  9. VITAMIN D [Concomitant]

REACTIONS (15)
  - BACK PAIN [None]
  - CHEST PAIN [None]
  - DYSPNOEA [None]
  - EYE PRURITUS [None]
  - FEELING ABNORMAL [None]
  - GLOSSODYNIA [None]
  - HYPERSENSITIVITY [None]
  - HYPOAESTHESIA ORAL [None]
  - OESOPHAGEAL PAIN [None]
  - ORAL PRURITUS [None]
  - OROPHARYNGEAL PAIN [None]
  - PAIN IN EXTREMITY [None]
  - PAIN IN JAW [None]
  - PRURITUS [None]
  - THROAT IRRITATION [None]
